FAERS Safety Report 5383811-8 (Version None)
Quarter: 2007Q3

REPORT INFORMATION
  Report Type: 
  Country: None (occurrence: None)
  Receive Date: 20070702
  Receipt Date: 20070501
  Transmission Date: 20080115
  Serious: No
  Sender: FDA-Public Use
  Company Number: 2007PV032876

PATIENT
  Age: 36 Year
  Sex: Male

DRUGS (2)
  1. SYMLIN [Suspect]
     Indication: TYPE 2 DIABETES MELLITUS
     Dosage: ;TID;SC
     Route: 058
     Dates: start: 20060101
  2. INSULIN [Concomitant]

REACTIONS (1)
  - INJECTION SITE PAIN [None]
